FAERS Safety Report 10511304 (Version 1)
Quarter: 2014Q4

REPORT INFORMATION
  Report Type: Spontaneous
  Country: US (occurrence: US)
  Receive Date: 20141010
  Receipt Date: 20141010
  Transmission Date: 20150528
  Serious: Yes (Other)
  Sender: FDA-Public Use
  Company Number: US-ACTAVIS-2014-21516

PATIENT
  Sex: Male

DRUGS (1)
  1. CIPROFLOXACIN (WATSON LABORATORIES) [Suspect]
     Active Substance: CIPROFLOXACIN
     Indication: EAR INFECTION
     Dosage: UNK, UNKNOWN
     Route: 065

REACTIONS (4)
  - Ear discomfort [Unknown]
  - Infection [Unknown]
  - Wrong drug administered [Unknown]
  - Deafness bilateral [Unknown]
